FAERS Safety Report 10666285 (Version 1)
Quarter: 2014Q4

REPORT INFORMATION
  Report Type: Spontaneous
  Country: US (occurrence: US)
  Receive Date: 20141220
  Receipt Date: 20141220
  Transmission Date: 20150529
  Serious: No
  Sender: FDA-Public Use
  Company Number: US-BAUSCH-SYM-2014-20761

PATIENT
  Sex: Female

DRUGS (3)
  1. BLOOD PRESSURE MEDICINES [Concomitant]
     Active Substance: UNSPECIFIED INGREDIENT
     Indication: HYPERTENSION
  2. DEPRESSION MEDICINES [Concomitant]
     Indication: DEPRESSION
  3. XENAZINE [Suspect]
     Active Substance: TETRABENAZINE
     Indication: HUNTINGTON^S DISEASE
     Route: 048
     Dates: start: 201403

REACTIONS (2)
  - Fatigue [Unknown]
  - Dyskinesia [Unknown]

NARRATIVE: CASE EVENT DATE: 2014
